FAERS Safety Report 6075334-8 (Version None)
Quarter: 2009Q1

REPORT INFORMATION
  Report Type: 
  Country: None (occurrence: None)
  Receive Date: 20090212
  Receipt Date: 20090204
  Transmission Date: 20090719
  Serious: Yes (Hospitalization)
  Sender: FDA-Public Use
  Company Number: IT-WATSON-2009-00913

PATIENT
  Age: 27 Year
  Sex: Female

DRUGS (6)
  1. FERRLECIT [Suspect]
     Indication: ASTHENIA
     Dosage: 2 UNITS DAILY
     Route: 042
     Dates: start: 20090122, end: 20090122
  2. MACLADIN [Concomitant]
     Indication: ERYSIPELAS
     Dosage: 500 MG, DAILY X14D
     Route: 048
  3. CEFIXORAL [Concomitant]
     Indication: ERYSIPELAS
     Dosage: UNK, X1D
     Route: 065
  4. AUGMENTIN '125' [Concomitant]
     Indication: ERYSIPELAS
     Dosage: 1 G, DAILY X14D
     Route: 048
  5. ESTROGEN NOS [Concomitant]
     Indication: DRUG USE FOR UNKNOWN INDICATION
     Dosage: UNK
     Route: 065
  6. PROGESTOGENS AND ESTROGENS IN COMBINATION [Concomitant]
     Indication: DRUG USE FOR UNKNOWN INDICATION
     Dosage: UNK

REACTIONS (4)
  - ANAPHYLACTIC SHOCK [None]
  - DYSTONIA [None]
  - HYPOTENSION [None]
  - OEDEMA MOUTH [None]
